FAERS Safety Report 17938743 (Version 1)
Quarter: 2020Q2

REPORT INFORMATION
  Report Type: Spontaneous
  Country: US (occurrence: US)
  Receive Date: 20200625
  Receipt Date: 20200625
  Transmission Date: 20200714
  Serious: No
  Sender: FDA-Public Use
  Company Number: US-JNJFOC-20200630991

PATIENT
  Sex: Male
  Weight: 104.42 kg

DRUGS (1)
  1. IMODIUM A-D [Suspect]
     Active Substance: LOPERAMIDE HYDROCHLORIDE
     Indication: DIARRHOEA
     Dosage: DOUBLE DOSE ONCE DAILY
     Route: 065
     Dates: end: 20200622

REACTIONS (1)
  - Nausea [Recovered/Resolved]
